FAERS Safety Report 14240549 (Version 1)
Quarter: 2017Q4

REPORT INFORMATION
  Report Type: Spontaneous
  Country: US (occurrence: US)
  Receive Date: 20171130
  Receipt Date: 20171130
  Transmission Date: 20180321
  Serious: Yes (Other)
  Sender: FDA-Public Use
  Company Number: PHEH2017US037894

PATIENT
  Age: 71 Year
  Sex: Female

DRUGS (2)
  1. TASIGNA [Suspect]
     Active Substance: NILOTINIB
     Indication: CHRONIC LYMPHOCYTIC LEUKAEMIA
     Dosage: 600 MG, QD
     Route: 065
  2. TASIGNA [Suspect]
     Active Substance: NILOTINIB
     Indication: CHRONIC MYELOID LEUKAEMIA
     Dosage: 800 MG, QD
     Route: 065

REACTIONS (9)
  - Chest pain [Unknown]
  - Syncope [Unknown]
  - Alopecia [Unknown]
  - Hypertension [Unknown]
  - Cardiac disorder [Recovered/Resolved]
  - Dizziness [Unknown]
  - Troponin increased [Unknown]
  - Dyspnoea [Unknown]
  - Oropharyngeal pain [Unknown]
